FAERS Safety Report 13319394 (Version 1)
Quarter: 2017Q1

REPORT INFORMATION
  Report Type: Spontaneous
  Country: US (occurrence: US)
  Receive Date: 20170309
  Receipt Date: 20170309
  Transmission Date: 20170428
  Serious: Yes (Other)
  Sender: FDA-Public Use
  Company Number: None

PATIENT

DRUGS (1)
  1. OLMESARTAN MEDOXOMIL. [Suspect]
     Active Substance: OLMESARTAN MEDOXOMIL
     Indication: HYPERTENSION
     Route: 048
     Dates: start: 20170121, end: 20170307

REACTIONS (11)
  - Blood pressure increased [None]
  - Cough [None]
  - Pain in extremity [None]
  - Tension [None]
  - Sinus disorder [None]
  - Headache [None]
  - Feeling abnormal [None]
  - Abdominal pain upper [None]
  - Urinary tract pain [None]
  - Fatigue [None]
  - Dizziness [None]

NARRATIVE: CASE EVENT DATE: 20170125
